FAERS Safety Report 7891746-1 (Version None)
Quarter: 2011Q4

REPORT INFORMATION
  Report Type: 
  Country: None (occurrence: None)
  Receive Date: 20111103
  Receipt Date: 20110809
  Transmission Date: 20120403
  Serious: No
  Sender: FDA-Public Use
  Company Number: US-AMGEN-USASP2011040478

PATIENT
  Sex: Female

DRUGS (1)
  1. ENBREL [Suspect]
     Indication: PSORIASIS
     Dosage: UNK
     Dates: start: 20090601

REACTIONS (4)
  - PAIN [None]
  - INJECTION SITE EXTRAVASATION [None]
  - PSORIASIS [None]
  - OEDEMA PERIPHERAL [None]
